FAERS Safety Report 5047304-X (Version None)
Quarter: 2006Q3

REPORT INFORMATION
  Report Type: 
  Country: None (occurrence: None)
  Receive Date: 20060711
  Receipt Date: 20060629
  Transmission Date: 20061208
  Serious: Yes (Hospitalization)
  Sender: FDA-Public Use
  Company Number: US-JNJFOC-20060700258

PATIENT
  Sex: Female
  Weight: 89.81 kg

DRUGS (13)
  1. REMICADE [Suspect]
     Route: 042
  2. REMICADE [Suspect]
     Indication: RHEUMATOID ARTHRITIS
     Route: 042
  3. ATENOLOL [Concomitant]
  4. LEVOXYL [Concomitant]
  5. NEXIUM [Concomitant]
  6. ZESTRIL [Concomitant]
  7. ZOLOFT [Concomitant]
  8. PREMARIN [Concomitant]
  9. ZETIA [Concomitant]
  10. AMBIEN [Concomitant]
     Dosage: AT BEDTIME
  11. CALCIUM GLUCONATE [Concomitant]
  12. WELLBUTRIN [Concomitant]
  13. PREDNISONE [Concomitant]

REACTIONS (1)
  - HERPES ZOSTER OPHTHALMIC [None]
